FAERS Safety Report 20701856 (Version 2)
Quarter: 2022Q2

REPORT INFORMATION
  Report Type: Other
  Country: KR (occurrence: None)
  Receive Date: 20220412
  Receipt Date: 20220630
  Transmission Date: 20220721
  Serious: Yes (Hospitalization, Other)
  Sender: FDA-Public Use
  Company Number: KR-ROCHE-3068810

PATIENT
  Age: 74 Year
  Sex: Male
  Weight: 70 kg

DRUGS (15)
  1. ATEZOLIZUMAB [Suspect]
     Active Substance: ATEZOLIZUMAB
     Indication: Small cell lung cancer extensive stage
     Dosage: 24/AUG/2021, 24/SEP/2021, 22/OCT/2021, 18/NOV/2021, 09/DEC/2021, 30/DEC/2021, 27/JAN/2022, 17/FEB/20
     Route: 041
     Dates: start: 20210731
  2. CARBOPLATIN [Suspect]
     Active Substance: CARBOPLATIN
     Indication: Small cell lung cancer extensive stage
     Route: 042
     Dates: start: 20210731
  3. CARBOPLATIN [Suspect]
     Active Substance: CARBOPLATIN
     Route: 042
     Dates: start: 20210824
  4. CARBOPLATIN [Suspect]
     Active Substance: CARBOPLATIN
     Route: 042
     Dates: start: 20210924
  5. CARBOPLATIN [Suspect]
     Active Substance: CARBOPLATIN
     Route: 042
     Dates: start: 20211022
  6. ETOPOSIDE [Suspect]
     Active Substance: ETOPOSIDE
     Indication: Small cell lung cancer extensive stage
     Dosage: 01/AUG/2021, 02/AUG/2021
     Route: 042
     Dates: start: 20210731
  7. ETOPOSIDE [Suspect]
     Active Substance: ETOPOSIDE
     Dosage: 25/AUG/2021, 26/AUG/2021
     Route: 042
     Dates: start: 20210824
  8. ETOPOSIDE [Suspect]
     Active Substance: ETOPOSIDE
     Dosage: 25/SEP/2021, 26/SEP/2021
     Route: 042
     Dates: start: 20210924
  9. ETOPOSIDE [Suspect]
     Active Substance: ETOPOSIDE
     Dosage: 23/OCT/2021, 24/OCT/2021
     Route: 042
     Dates: start: 20211022
  10. PRIVITUSS [Concomitant]
     Indication: Cough
     Dates: start: 20210801
  11. AMARYL [Concomitant]
     Active Substance: GLIMEPIRIDE
     Indication: Diabetes mellitus
     Dates: start: 20210730
  12. VILDAGLIPTIN [Concomitant]
     Active Substance: VILDAGLIPTIN
     Indication: Diabetes mellitus
     Dates: start: 20210730
  13. MOSAPRIDE CITRATE [Concomitant]
     Active Substance: MOSAPRIDE CITRATE
     Indication: Prophylaxis
     Dates: start: 20210801
  14. KANITRON [Concomitant]
     Indication: Prophylaxis of nausea and vomiting
     Dates: start: 20210801
  15. DIETARY SUPPLEMENT\HERBALS\MILK THISTLE [Concomitant]
     Active Substance: DIETARY SUPPLEMENT\HERBALS\MILK THISTLE
     Indication: Prophylaxis
     Dates: start: 20210730

REACTIONS (2)
  - Syncope [Recovered/Resolved]
  - Diarrhoea [Recovered/Resolved]

NARRATIVE: CASE EVENT DATE: 20210923
